FAERS Safety Report 6115531-6 (Version None)
Quarter: 2009Q1

REPORT INFORMATION
  Report Type: 
  Country: None (occurrence: None)
  Receive Date: 20090313
  Receipt Date: 20090305
  Transmission Date: 20090719
  Serious: Yes (Death)
  Sender: FDA-Public Use
  Company Number: IN-ROCHE-619009

PATIENT
  Sex: Female
  Weight: 46 kg

DRUGS (2)
  1. CAPECITABINE [Suspect]
     Route: 048
     Dates: start: 20070128, end: 20070402
  2. DOCETAXEL [Suspect]
     Route: 042
     Dates: start: 20070128, end: 20070402

REACTIONS (1)
  - DEATH [None]
